FAERS Safety Report 6202209-3 (Version None)
Quarter: 2009Q2

REPORT INFORMATION
  Report Type: 
  Country: None (occurrence: None)
  Receive Date: 20090520
  Receipt Date: 20090507
  Transmission Date: 20091009
  Serious: Yes (Hospitalization)
  Sender: FDA-Public Use
  Company Number: US-000272

PATIENT
  Sex: Male

DRUGS (1)
  1. DEGARELIX 240 MG [Suspect]
     Indication: PROSTATE CANCER
     Dosage: SUBCUTANEOUS
     Route: 058

REACTIONS (2)
  - ABDOMINAL DISTENSION [None]
  - ABDOMINAL PAIN [None]
